FAERS Safety Report 24082088 (Version 1)
Quarter: 2024Q3

REPORT INFORMATION
  Report Type: Spontaneous
  Country: CN (occurrence: CN)
  Receive Date: 20240712
  Receipt Date: 20240712
  Transmission Date: 20241017
  Serious: Yes (Death, Other)
  Sender: RANBAXY
  Company Number: CN-SUN PHARMACEUTICAL INDUSTRIES LTD-2024R1-455885

PATIENT
  Age: 33 Year
  Sex: Male

DRUGS (2)
  1. PALBOCICLIB [Suspect]
     Active Substance: PALBOCICLIB
     Indication: Sarcoma
     Dosage: 125 MILLIGRAM, DAILY DAYS 1-21 OF A 28 DAY CYCLE
     Route: 065
  2. TEMOZOLOMIDE [Suspect]
     Active Substance: TEMOZOLOMIDE
     Indication: Sarcoma
     Dosage: 20 MILLIGRAM, DAILY, DAYS 1-5 OF THE SAME CYCLE
     Route: 065

REACTIONS (3)
  - Disease progression [Fatal]
  - Respiratory failure [Fatal]
  - Condition aggravated [Fatal]
